FAERS Safety Report 9387053 (Version 1)
Quarter: 2013Q3

REPORT INFORMATION
  Report Type: Report from Study
  Country: CA (occurrence: CA)
  Receive Date: 20130708
  Receipt Date: 20130708
  Transmission Date: 20140515
  Serious: Yes (Other)
  Sender: FDA-Public Use
  Company Number: CA-JNJFOC-20130703087

PATIENT
  Age: 60 Year
  Sex: Male
  Weight: 95.6 kg

DRUGS (4)
  1. REMICADE [Suspect]
     Indication: PSORIASIS
     Route: 042
     Dates: start: 20120918
  2. TYLENOL [Concomitant]
     Route: 065
  3. ACETYLSALICYLIC ACID [Concomitant]
     Route: 065
  4. PAXIL [Concomitant]
     Route: 065

REACTIONS (1)
  - Arthritis [Not Recovered/Not Resolved]
